FAERS Safety Report 24565047 (Version 1)
Quarter: 2024Q4

REPORT INFORMATION
  Report Type: Report from Study
  Country: KR (occurrence: KR)
  Receive Date: 20241030
  Receipt Date: 20241030
  Transmission Date: 20250114
  Serious: Yes (Death, Hospitalization, Other)
  Sender: JOHNSON AND JOHNSON
  Company Number: KR-JNJFOC-20231153393

PATIENT
  Age: 67 Year
  Sex: Male
  Weight: 41.9 kg

DRUGS (10)
  1. LAZERTINIB [Suspect]
     Active Substance: LAZERTINIB
     Indication: Non-small cell lung cancer
     Route: 048
     Dates: start: 20231006, end: 20231013
  2. LAZERTINIB [Suspect]
     Active Substance: LAZERTINIB
     Route: 048
     Dates: start: 20230202, end: 20231210
  3. VENTOLIN [Concomitant]
     Active Substance: ALBUTEROL SULFATE
     Indication: Lung neoplasm malignant
     Dosage: 1 NEBULIZER
     Dates: start: 20231210, end: 20231212
  4. ALBUMINE HUMAINE IODEE (125I) CIS BIO INTERNATIONAL [Concomitant]
     Indication: Electrolyte imbalance
     Route: 042
     Dates: start: 20231127, end: 20231130
  5. LEVOFLOXACIN [Concomitant]
     Active Substance: LEVOFLOXACIN
     Indication: Lung neoplasm malignant
     Dosage: 1 BTL
     Route: 042
     Dates: start: 20231013, end: 20231129
  6. PROPACETAMOL HYDROCHLORIDE [Concomitant]
     Active Substance: PROPACETAMOL HYDROCHLORIDE
     Indication: Lung neoplasm malignant
     Route: 042
     Dates: start: 20231203, end: 20231213
  7. AMINO ACIDS\DEXTROSE\ELECTROLYTES NOS\SOYBEAN OIL [Concomitant]
     Active Substance: AMINO ACIDS\DEXTROSE\ELECTROLYTES NOS\SOYBEAN OIL
     Indication: Prophylaxis
     Dosage: 1 BAG
     Route: 042
     Dates: start: 20231211, end: 20231213
  8. TAZOPERAN [Concomitant]
     Indication: Lung neoplasm malignant
     Dosage: 4 VIAL
     Route: 042
     Dates: start: 20231127, end: 20231207
  9. UNI INFUSION [Concomitant]
     Indication: Lung neoplasm malignant
     Dosage: 2 AMP
     Route: 042
     Dates: start: 20231130, end: 20231211
  10. ZITHROMAX [Concomitant]
     Active Substance: AZITHROMYCIN DIHYDRATE
     Dates: start: 20230511, end: 20231210

REACTIONS (2)
  - Pneumonitis [Fatal]
  - Pneumonia [Recovered/Resolved]

NARRATIVE: CASE EVENT DATE: 20231013
